FAERS Safety Report 18972128 (Version 1)
Quarter: 2021Q1

REPORT INFORMATION
  Report Type: Spontaneous
  Country: US (occurrence: US)
  Receive Date: 20210303
  Receipt Date: 20210303
  Transmission Date: 20210420
  Serious: Yes (Life-Threatening, Hospitalization)
  Sender: FDA-Public Use
  Company Number: None

PATIENT
  Age: 70 Year
  Sex: Male
  Weight: 130.18 kg

DRUGS (3)
  1. WARFARIN (WARFARIN NA (EXELAN) 2MG TAB) [Suspect]
     Active Substance: WARFARIN SODIUM
     Indication: ATRIAL FIBRILLATION
     Dates: start: 20200630, end: 20200707
  2. ENOXAPARIN (ENOXAPARIN 100MG/ML INJ) [Suspect]
     Active Substance: ENOXAPARIN
     Dates: start: 20200625, end: 20200707
  3. WARFARIN (WARFARIN NA (EXELAN) 2MG TAB) [Suspect]
     Active Substance: WARFARIN SODIUM
     Indication: AORTIC VALVE REPLACEMENT

REACTIONS (10)
  - Hyperkalaemia [None]
  - Cardiac tamponade [None]
  - Transfusion [None]
  - Acute kidney injury [None]
  - Leukocytosis [None]
  - Dialysis [None]
  - Packed red blood cell transfusion [None]
  - Lactic acidosis [None]
  - Anticoagulation drug level above therapeutic [None]
  - Pericardial effusion [None]

NARRATIVE: CASE EVENT DATE: 20200707
